FAERS Safety Report 10037795 (Version 1)
Quarter: 2014Q1

REPORT INFORMATION
  Report Type: Spontaneous
  Country: US (occurrence: None)
  Receive Date: 20140324
  Receipt Date: 20140324
  Transmission Date: 20141002
  Serious: Yes (Other)
  Sender: FDA-Public Use
  Company Number: 2014AP002080

PATIENT
  Age: 74 Year
  Sex: Female

DRUGS (9)
  1. RISPERIDONE [Suspect]
     Dosage: 0.125 MG; QD; PO?
     Route: 048
  2. QUETIAPINE [Concomitant]
  3. DONEPEZIL [Concomitant]
  4. CITALOPRAM [Concomitant]
  5. MEMANTINE [Concomitant]
  6. LEVOTHYROXINE [Concomitant]
  7. ATENOLOL [Concomitant]
  8. TRIMETHOPRIM SULFAMETHOXAZOLE [Concomitant]
  9. ASPIRIN [Concomitant]

REACTIONS (6)
  - Serotonin syndrome [None]
  - Myoclonus [None]
  - Blood creatinine increased [None]
  - Urinary tract infection [None]
  - Bacterial infection [None]
  - Abnormal behaviour [None]
